FAERS Safety Report 16931670 (Version 1)
Quarter: 2019Q4

REPORT INFORMATION
  Report Type: Other
  Country: FR (occurrence: FR)
  Receive Date: 20191017
  Receipt Date: 20191017
  Transmission Date: 20200122
  Serious: Yes (Death)
  Sender: FDA-Public Use
  Company Number: FR-CHIESI USA, INC.-FR-2019CHI000383

PATIENT

DRUGS (2)
  1. CUROSURF [Concomitant]
     Active Substance: PORACTANT ALFA
     Indication: NEONATAL RESPIRATORY DISTRESS SYNDROME
     Dosage: 1 DF, TOTAL
     Route: 039
     Dates: start: 20190909
  2. CUROSURF [Suspect]
     Active Substance: PORACTANT ALFA
     Indication: NEONATAL RESPIRATORY DISTRESS SYNDROME
     Dosage: 1 DF, TOTAL
     Route: 039
     Dates: start: 20190910

REACTIONS (1)
  - Neonatal pneumothorax [Fatal]

NARRATIVE: CASE EVENT DATE: 20190910
